FAERS Safety Report 23096596 (Version 1)
Quarter: 2023Q4

REPORT INFORMATION
  Report Type: Spontaneous
  Country: US (occurrence: None)
  Receive Date: 20231022
  Receipt Date: 20231022
  Transmission Date: 20240110
  Serious: Yes (Disabling)
  Sender: FDA-Public Use
  Company Number: None

PATIENT
  Age: 68 Year
  Sex: Female
  Weight: 50.4 kg

DRUGS (12)
  1. PAXLOVID [Suspect]
     Active Substance: NIRMATRELVIR\RITONAVIR
     Indication: COVID-19
     Dosage: OTHER QUANTITY : 15 TABLET(S);?FREQUENCY : TWICE A DAY;?
     Route: 048
     Dates: start: 20231001, end: 20231005
  2. LISINOPRIL [Concomitant]
     Active Substance: LISINOPRIL
  3. ATORVASTATIN [Concomitant]
     Active Substance: ATORVASTATIN
  4. HYDROCHLOROTHIAZIDE [Concomitant]
     Active Substance: HYDROCHLOROTHIAZIDE
  5. ALPRAZOLAM [Concomitant]
     Active Substance: ALPRAZOLAM
  6. ALBUTEROL [Concomitant]
     Active Substance: ALBUTEROL
  7. SERTRALINE [Concomitant]
     Active Substance: SERTRALINE HYDROCHLORIDE
  8. VITAMIN D [Concomitant]
     Active Substance: VITAMIN D NOS
  9. immune system builder [Concomitant]
  10. ZINC [Concomitant]
     Active Substance: PYRITHIONE ZINC\ZINC\ZINC CHLORIDE
  11. COPPER [Concomitant]
     Active Substance: COPPER
  12. FISH OIL [Concomitant]
     Active Substance: FISH OIL

REACTIONS (10)
  - Panic attack [None]
  - Anxiety [None]
  - Anxiety [None]
  - Nervousness [None]
  - Brain fog [None]
  - Anxiety [None]
  - Disturbance in attention [None]
  - Restlessness [None]
  - Blindness [None]
  - Vertigo [None]

NARRATIVE: CASE EVENT DATE: 20231010
